FAERS Safety Report 8874594 (Version 4)
Quarter: 2013Q4

REPORT INFORMATION
  Report Type: Spontaneous
  Country: IT (occurrence: IT)
  Receive Date: 20121031
  Receipt Date: 20131014
  Transmission Date: 20140711
  Serious: Yes (Hospitalization)
  Sender: FDA-Public Use
  Company Number: IT-BRISTOL-MYERS SQUIBB COMPANY-17080417

PATIENT
  Age: 58 Year
  Sex: Male

DRUGS (5)
  1. ERBITUX SOLN FOR INF [Suspect]
     Indication: COLON CANCER METASTATIC
     Dosage: 6 CYCLES
     Route: 042
     Dates: start: 20120529, end: 20120813
  2. IRINOTECAN [Suspect]
     Indication: COLON CANCER METASTATIC
     Route: 042
  3. OXALIPLATIN [Concomitant]
     Indication: COLON CANCER METASTATIC
  4. FOLINIC ACID [Concomitant]
     Indication: COLON CANCER METASTATIC
  5. 5-FLUOROURACIL [Concomitant]
     Indication: COLON CANCER METASTATIC
     Dosage: DAY 1 2076 MG?CON INF 44 HRS
     Route: 040

REACTIONS (3)
  - Osteonecrosis [Recovering/Resolving]
  - Rash macular [Not Recovered/Not Resolved]
  - Rash pustular [Not Recovered/Not Resolved]
